FAERS Safety Report 21643089 (Version 2)
Quarter: 2023Q4

REPORT INFORMATION
  Report Type: Spontaneous
  Country: US (occurrence: US)
  Receive Date: 20221125
  Receipt Date: 20231210
  Transmission Date: 20240110
  Serious: No
  Sender: FDA-Public Use
  Company Number: US-SANOFI-01375813

PATIENT
  Age: 1 Year
  Sex: Female

DRUGS (2)
  1. CEREZYME [Suspect]
     Active Substance: IMIGLUCERASE
     Indication: Gaucher^s disease type III
     Dosage: 5600 MG, QOW
     Dates: start: 20120404
  2. CEREZYME [Suspect]
     Active Substance: IMIGLUCERASE
     Dosage: 4400 IU, QOW
     Dates: start: 20211217

REACTIONS (2)
  - Illness [Unknown]
  - Off label use [Unknown]

NARRATIVE: CASE EVENT DATE: 20120404
